FAERS Safety Report 10151176 (Version 1)
Quarter: 2014Q2

REPORT INFORMATION
  Report Type: Spontaneous
  Country: US (occurrence: US)
  Receive Date: 20140502
  Receipt Date: 20140502
  Transmission Date: 20141212
  Serious: No
  Sender: FDA-Public Use
  Company Number: US-ASTRAZENECA-2014SE19105

PATIENT
  Age: 3 Year
  Sex: Male
  Weight: 18.1 kg

DRUGS (1)
  1. PRILOSEC OTC [Suspect]
     Route: 048
     Dates: start: 20140313, end: 20140313

REACTIONS (3)
  - Psychomotor hyperactivity [Recovered/Resolved]
  - Accidental exposure to product by child [Unknown]
  - Exposure via ingestion [Unknown]
